FAERS Safety Report 16211913 (Version 2)
Quarter: 2019Q2

REPORT INFORMATION
  Report Type: Spontaneous
  Country: US (occurrence: US)
  Receive Date: 20190418
  Receipt Date: 20190514
  Transmission Date: 20190711
  Serious: No
  Sender: FDA-Public Use
  Company Number: US-ASTRAZENECA-2019SE52999

PATIENT
  Sex: Female

DRUGS (1)
  1. BYDUREON BCISE [Suspect]
     Active Substance: EXENATIDE
     Indication: DIABETES MELLITUS
     Route: 058
     Dates: start: 201904

REACTIONS (5)
  - Injection site haemorrhage [Unknown]
  - Device malfunction [Unknown]
  - Device issue [Unknown]
  - Injection site nodule [Unknown]
  - Product dose omission [Unknown]
